FAERS Safety Report 15230984 (Version 1)
Quarter: 2018Q3

REPORT INFORMATION
  Report Type: Spontaneous
  Country: US (occurrence: US)
  Receive Date: 20180802
  Receipt Date: 20180802
  Transmission Date: 20181010
  Serious: Yes (Other)
  Sender: FDA-Public Use
  Company Number: US-ACCORD-063814

PATIENT
  Age: 50 Year
  Sex: Female

DRUGS (11)
  1. PRILOSEC [Concomitant]
     Active Substance: OMEPRAZOLE MAGNESIUM
     Dosage: STRENGTH: 20 MG
  2. PARAPLATIN [Suspect]
     Active Substance: CARBOPLATIN
     Indication: BREAST CANCER
     Route: 042
     Dates: start: 20140227, end: 20140501
  3. VENLAFAXINE/VENLAFAXINE HYDROCHLORIDE [Concomitant]
     Dates: start: 20100101
  4. DECADRON [Concomitant]
     Active Substance: DEXAMETHASONE
     Route: 042
  5. SILVADENE [Concomitant]
     Active Substance: SILVER SULFADIAZINE
     Dosage: STRENGTH: 1%?1 APPLICATION TO AFFECTED AREA ONCE A DAY
  6. HERCEPTIN [Concomitant]
     Active Substance: TRASTUZUMAB
  7. ALOXI [Concomitant]
     Active Substance: PALONOSETRON HYDROCHLORIDE
  8. BENADRYL [Concomitant]
     Active Substance: DIPHENHYDRAMINE HYDROCHLORIDE
     Route: 042
  9. EMEND [Concomitant]
     Active Substance: APREPITANT
  10. DOCETAXEL ACCORD [Suspect]
     Active Substance: DOCETAXEL
     Indication: BREAST CANCER
     Route: 042
     Dates: start: 20140227, end: 20140501
  11. NEULASTA [Concomitant]
     Active Substance: PEGFILGRASTIM

REACTIONS (1)
  - Alopecia [Not Recovered/Not Resolved]

NARRATIVE: CASE EVENT DATE: 20140401
